FAERS Safety Report 11301905 (Version 1)
Quarter: 2015Q3

REPORT INFORMATION
  Report Type: Spontaneous
  Country: US (occurrence: US)
  Receive Date: 20150722
  Receipt Date: 20150722
  Transmission Date: 20151125
  Serious: No
  Sender: FDA-Public Use
  Company Number: US-ELI_LILLY_AND_COMPANY-US201407003881

PATIENT
  Sex: Male

DRUGS (4)
  1. ZESTRIL [Concomitant]
     Active Substance: LISINOPRIL
     Dosage: UNK, UNKNOWN
     Route: 065
  2. LIPITOR [Concomitant]
     Active Substance: ATORVASTATIN CALCIUM
     Dosage: UNK, UNKNOWN
     Route: 065
  3. PRIVINIL [Concomitant]
     Dosage: UNK, UNKNOWN
     Route: 065
  4. EFFIENT [Suspect]
     Active Substance: PRASUGREL HYDROCHLORIDE
     Indication: CARDIAC VALVE RUPTURE
     Dosage: 10 MG, UNKNOWN
     Route: 065
     Dates: start: 201404

REACTIONS (2)
  - Off label use [Unknown]
  - Thirst [Unknown]

NARRATIVE: CASE EVENT DATE: 201404
